FAERS Safety Report 9752874 (Version 1)
Quarter: 2013Q4

REPORT INFORMATION
  Report Type: Spontaneous
  Country: US (occurrence: None)
  Receive Date: 20131212
  Receipt Date: 20131212
  Transmission Date: 20140711
  Serious: Yes (Life-Threatening, Hospitalization)
  Sender: FDA-Public Use
  Company Number: None

PATIENT
  Age: 64 Year
  Sex: Male
  Weight: 63.2 kg

DRUGS (1)
  1. ENTECAVIR [Suspect]
     Indication: HEPATITIS B
     Dosage: 1 PILL  DIALY  ORAL
     Route: 048
     Dates: start: 20130624, end: 20130709

REACTIONS (4)
  - Blood creatinine increased [None]
  - Tremor [None]
  - Renal impairment [None]
  - Malaise [None]
